FAERS Safety Report 5228074-9 (Version None)
Quarter: 2007Q1

REPORT INFORMATION
  Report Type: 
  Country: None (occurrence: None)
  Receive Date: 20061201
  Receipt Date: 20061011
  Transmission Date: 20070707
  Serious: No
  Sender: FDA-Public Use
  Company Number: US200610002168

PATIENT
  Age: 65 Year
  Sex: Female

DRUGS (6)
  1. CYMBALTA [Suspect]
     Indication: DEPRESSION
     Dosage: SEE IMAGE
     Route: 048
     Dates: start: 20060101, end: 20060914
  2. CYMBALTA [Suspect]
     Indication: DEPRESSION
     Dosage: SEE IMAGE
     Route: 048
     Dates: start: 20060915, end: 20060928
  3. CYMBALTA [Suspect]
     Indication: DEPRESSION
     Dosage: SEE IMAGE
     Route: 048
     Dates: start: 20060928, end: 20061007
  4. ANTIBIOTICS [Concomitant]
  5. ANTIBIOTICS FOR TOPICAL [Concomitant]
  6. LIPITOR [Concomitant]

REACTIONS (12)
  - ABDOMINAL PAIN UPPER [None]
  - BALANCE DISORDER [None]
  - DIZZINESS [None]
  - DRUG INEFFECTIVE [None]
  - DRUG WITHDRAWAL SYNDROME [None]
  - DYSPEPSIA [None]
  - FATIGUE [None]
  - HEADACHE [None]
  - HORDEOLUM [None]
  - IRRITABILITY [None]
  - MEMORY IMPAIRMENT [None]
  - NAUSEA [None]
